FAERS Safety Report 7701281-9 (Version None)
Quarter: 2011Q3

REPORT INFORMATION
  Report Type: 
  Country: None (occurrence: None)
  Receive Date: 20110819
  Receipt Date: 20110819
  Transmission Date: 20111222
  Serious: Yes (Life-Threatening, Hospitalization, Other)
  Sender: FDA-Public Use
  Company Number: None

PATIENT
  Age: 80 Year
  Sex: Female

DRUGS (1)
  1. ALLOPURINOL [Suspect]
     Dosage: 100 MG PO DAILY
     Route: 048
     Dates: end: 20110419

REACTIONS (5)
  - CONTUSION [None]
  - FATIGUE [None]
  - PANCYTOPENIA [None]
  - APLASTIC ANAEMIA [None]
  - DYSPNOEA [None]
